FAERS Safety Report 5724993-5 (Version None)
Quarter: 2008Q2

REPORT INFORMATION
  Report Type: 
  Country: None (occurrence: None)
  Receive Date: 20080430
  Receipt Date: 20080430
  Transmission Date: 20081010
  Serious: No
  Sender: FDA-Public Use
  Company Number: None

PATIENT
  Age: 63 Year
  Sex: Female
  Weight: 65.7716 kg

DRUGS (1)
  1. LEVAQUIN [Suspect]
     Indication: INFECTED CYST
     Dosage: ONE/DAY
     Dates: start: 20070601, end: 20070611

REACTIONS (2)
  - ARTHRALGIA [None]
  - MYALGIA [None]
